FAERS Safety Report 7989068-3 (Version None)
Quarter: 2011Q4

REPORT INFORMATION
  Report Type: 
  Country: None (occurrence: None)
  Receive Date: 20111219
  Receipt Date: 20111207
  Transmission Date: 20120403
  Serious: Yes (Hospitalization, Other)
  Sender: FDA-Public Use
  Company Number: US-BAYER-2011-049321

PATIENT
  Age: 23 Year
  Sex: Female
  Weight: 111.11 kg

DRUGS (5)
  1. YAZ [Suspect]
     Indication: ACNE
  2. METRONIDAZOLE [Concomitant]
     Indication: INFECTION
     Dosage: 500 MG, UNK
     Route: 048
     Dates: start: 20090301
  3. NUVARING [Concomitant]
     Indication: CONTRACEPTION
     Dosage: UNK
     Route: 067
     Dates: start: 20090325, end: 20090428
  4. YAZ [Suspect]
     Indication: CONTRACEPTION
     Dosage: UNK
     Dates: start: 20090501, end: 20090601
  5. YAZ [Suspect]
     Indication: PREMENSTRUAL SYNDROME

REACTIONS (8)
  - EMOTIONAL DISTRESS [None]
  - INJURY [None]
  - ANXIETY [None]
  - PSYCHOLOGICAL TRAUMA [None]
  - BILIARY DYSKINESIA [None]
  - GALLBLADDER DISORDER [None]
  - PAIN [None]
  - CHOLECYSTITIS CHRONIC [None]
